FAERS Safety Report 11905861 (Version 1)
Quarter: 2016Q1

REPORT INFORMATION
  Report Type: Spontaneous
  Country: US (occurrence: None)
  Receive Date: 20160107
  Receipt Date: 20160107
  Transmission Date: 20160526
  Serious: Yes (Hospitalization)
  Sender: FDA-Public Use
  Company Number: US-ALSI-201500326

PATIENT
  Age: 60 Year
  Sex: Male

DRUGS (1)
  1. NITROUS OXIDE. [Suspect]
     Active Substance: NITROUS OXIDE
     Indication: DRUG ABUSE
     Route: 055

REACTIONS (9)
  - Sedation [None]
  - Neurotoxicity [None]
  - Drug abuse [None]
  - Vitamin B12 deficiency [None]
  - Amino acid level increased [None]
  - Ataxia [None]
  - Pancytopenia [None]
  - Mental status changes [None]
  - Blood homocysteine increased [None]
